FAERS Safety Report 4394929-0 (Version None)
Quarter: 2004Q3

REPORT INFORMATION
  Report Type: 
  Country: None (occurrence: None)
  Receive Date: 20040712
  Receipt Date: 20040505
  Transmission Date: 20050211
  Serious: Yes (Hospitalization, Other)
  Sender: FDA-Public Use
  Company Number: GB-GLAXOSMITHKLINE-B0331920A

PATIENT
  Age: 36 Year
  Sex: Female

DRUGS (2)
  1. MALARONE [Suspect]
     Route: 065
  2. ORAL CONTRACEPTIVE [Concomitant]
     Route: 048

REACTIONS (4)
  - APLASTIC ANAEMIA [None]
  - FATIGUE [None]
  - FEELING ABNORMAL [None]
  - PANCYTOPENIA [None]
